FAERS Safety Report 6721048-8 (Version None)
Quarter: 2010Q2

REPORT INFORMATION
  Report Type: 
  Country: None (occurrence: None)
  Receive Date: 20100510
  Receipt Date: 20100427
  Transmission Date: 20101027
  Serious: Yes (Hospitalization)
  Sender: FDA-Public Use
  Company Number: 1000013696

PATIENT
  Age: 48 Year
  Sex: Female

DRUGS (6)
  1. ESCITALOPRAM [Suspect]
     Indication: DEPRESSION
     Dosage: 20 MG (20 MG, 1 IN 1 D), ORAL
     Route: 048
     Dates: start: 20090901, end: 20100217
  2. ABILIFY [Concomitant]
  3. ATHYMIL [Concomitant]
  4. OMEPRAZOLE [Concomitant]
  5. CARTROL [Concomitant]
  6. PARACETAMOL [Concomitant]

REACTIONS (6)
  - ALANINE AMINOTRANSFERASE INCREASED [None]
  - ASPARTATE AMINOTRANSFERASE INCREASED [None]
  - BLOOD PRESSURE FLUCTUATION [None]
  - CEREBRAL MICROANGIOPATHY [None]
  - HEADACHE [None]
  - HYPERTENSIVE CRISIS [None]
